FAERS Safety Report 15557270 (Version 1)
Quarter: 2018Q4

REPORT INFORMATION
  Report Type: Spontaneous
  Country: GB (occurrence: GB)
  Receive Date: 20181026
  Receipt Date: 20181026
  Transmission Date: 20190205
  Serious: Yes (Other)
  Sender: FDA-Public Use
  Company Number: GB-ALSI-201800575

PATIENT
  Age: 59 Year
  Sex: Female

DRUGS (4)
  1. CARBON DIOXIDE. [Suspect]
     Active Substance: CARBON DIOXIDE
     Indication: LAPAROSCOPIC SURGERY
     Route: 055
  2. REMIFENTANIL [Concomitant]
     Active Substance: REMIFENTANIL
  3. SEVOFLURANE. [Concomitant]
     Active Substance: SEVOFLURANE
  4. OXYGEN. [Concomitant]
     Active Substance: OXYGEN

REACTIONS (5)
  - Duodenal perforation [Recovered/Resolved]
  - Tachycardia [Recovered/Resolved]
  - End-tidal CO2 increased [Recovered/Resolved]
  - Hypertension [Recovered/Resolved]
  - Subcutaneous emphysema [Recovered/Resolved]
